FAERS Safety Report 9526772 (Version 1)
Quarter: 2013Q3

REPORT INFORMATION
  Report Type: Spontaneous
  Country: US (occurrence: US)
  Receive Date: 20130916
  Receipt Date: 20130916
  Transmission Date: 20140515
  Serious: Yes (Other)
  Sender: FDA-Public Use
  Company Number: US-GLAXOSMITHKLINE-A1041437A

PATIENT
  Sex: Male

DRUGS (1)
  1. ARIXTRA [Suspect]
     Indication: PRODUCT USED FOR UNKNOWN INDICATION
     Dates: start: 20121218

REACTIONS (2)
  - Neoplasm malignant [Not Recovered/Not Resolved]
  - Hospice care [Not Recovered/Not Resolved]
